FAERS Safety Report 7958472-1 (Version None)
Quarter: 2011Q4

REPORT INFORMATION
  Report Type: 
  Country: None (occurrence: None)
  Receive Date: 20111205
  Receipt Date: 20111123
  Transmission Date: 20120403
  Serious: Yes (Other)
  Sender: FDA-Public Use
  Company Number: US-CELGENEUS-163-21880-11114245

PATIENT
  Sex: Male

DRUGS (2)
  1. LASIX [Concomitant]
     Route: 065
  2. REVLIMID [Suspect]
     Indication: MULTIPLE MYELOMA
     Dosage: 10 MILLIGRAM
     Route: 048
     Dates: start: 20110622

REACTIONS (3)
  - OEDEMA PERIPHERAL [None]
  - CONTUSION [None]
  - HAEMORRHAGE [None]
